FAERS Safety Report 9657040 (Version 2)
Quarter: 2013Q4

REPORT INFORMATION
  Report Type: Spontaneous
  Country: JP (occurrence: JP)
  Receive Date: 20131030
  Receipt Date: 20131107
  Transmission Date: 20140711
  Serious: Yes (Hospitalization, Other)
  Sender: FDA-Public Use
  Company Number: JP-PFIZER INC-2013307191

PATIENT
  Age: 47 Year
  Sex: Female

DRUGS (10)
  1. IOPROMIDE [Suspect]
     Indication: COMPUTERISED TOMOGRAM
     Dosage: 77 ML, SINGLE
     Route: 065
     Dates: start: 20131007, end: 20131007
  2. MIGLITOL [Interacting]
     Dosage: 50 MG, 3X/DAY
     Route: 048
     Dates: start: 20110104
  3. SPIRONOLACTONE [Interacting]
     Dosage: 12.5 MG, DAILY
     Route: 048
     Dates: start: 20130226
  4. BEZAFIBRATE [Interacting]
     Dosage: 20 MG, 2X/DAY
     Route: 048
     Dates: start: 20110606
  5. METOPROLOL TARTRATE [Interacting]
     Dosage: 20 MG, 2X/DAY
     Route: 048
     Dates: start: 20110104
  6. URSODEOXYCHOLIC ACID [Interacting]
     Dosage: 600 MG, DAILY
     Route: 048
     Dates: start: 20130130
  7. TICAGRELOR [Interacting]
     Dosage: 50 MG, DAILY
     Route: 048
     Dates: start: 20130122
  8. TORASEMIDE [Interacting]
     Dosage: 4 MG, DAILY
     Route: 048
     Dates: start: 20130906
  9. LEVOCETIRIZINE DIHYDROCHLORIDE [Interacting]
     Dosage: 5 MG, DAILY
     Route: 048
     Dates: start: 20130410
  10. BETAMETHASONE VALERATE [Interacting]
     Dosage: 0.12 %, DAILY
     Route: 061
     Dates: start: 20091005

REACTIONS (3)
  - Drug interaction [Recovering/Resolving]
  - Stevens-Johnson syndrome [Recovering/Resolving]
  - Thrombocytopenia [Recovering/Resolving]
